FAERS Safety Report 9026175 (Version 2)
Quarter: 2013Q3

REPORT INFORMATION
  Report Type: Spontaneous
  Country: US (occurrence: None)
  Receive Date: 20130107
  Receipt Date: 20130815
  Transmission Date: 20140515
  Serious: Yes (Life-Threatening, Hospitalization, Other)
  Sender: FDA-Public Use
  Company Number: ADR-2012-02360

PATIENT
  Sex: Male

DRUGS (2)
  1. LIORESAL [Suspect]
     Indication: DYSTONIA
  2. MORPHINE ,ITRATHECAL [Concomitant]

REACTIONS (3)
  - Somnolence [None]
  - Somnolence [None]
  - Mydriasis [None]
